FAERS Safety Report 8242152-1 (Version None)
Quarter: 2012Q1

REPORT INFORMATION
  Report Type: 
  Country: None (occurrence: None)
  Receive Date: 20120314
  Receipt Date: 20110711
  Transmission Date: 20120608
  Serious: No
  Sender: FDA-Public Use
  Company Number: PHHY2011US62097

PATIENT
  Sex: Female

DRUGS (7)
  1. RISPERDAL [Suspect]
  2. PRISTIQ [Concomitant]
  3. SEROQUEL [Suspect]
  4. SAPHRIS [Suspect]
  5. LEXAPRO [Suspect]
  6. EFFEXOR XR [Concomitant]
  7. FANAPT [Suspect]
     Dosage: 8 MG, BID

REACTIONS (3)
  - ABNORMAL BEHAVIOUR [None]
  - INSOMNIA [None]
  - WEIGHT INCREASED [None]
